FAERS Safety Report 5389121-7 (Version None)
Quarter: 2007Q3

REPORT INFORMATION
  Report Type: 
  Country: None (occurrence: None)
  Receive Date: 20070717
  Receipt Date: 20070709
  Transmission Date: 20080115
  Serious: Yes (Death)
  Sender: FDA-Public Use
  Company Number: FR-BAYER-200710369BFR

PATIENT
  Age: 59 Year
  Sex: Female
  Weight: 110 kg

DRUGS (5)
  1. IZILOX [Suspect]
     Indication: BRONCHITIS
     Dosage: TOTAL DAILY DOSE: 400 MG  UNIT DOSE: 400 MG
     Route: 048
     Dates: start: 20070222, end: 20070222
  2. CARBOCISTEINE [Concomitant]
     Indication: BRONCHITIS
     Dates: start: 20070101
  3. SPIRONOLACTONE [Concomitant]
     Indication: UNEVALUABLE EVENT
  4. BETA ADRENERGIC BLOCKING AGENT (NOS) [Concomitant]
     Indication: UNEVALUABLE EVENT
  5. ANTIDIABETIC DRUG (NOS) [Concomitant]
     Indication: DIABETES MELLITUS

REACTIONS (6)
  - ANAPHYLACTIC SHOCK [None]
  - FALL [None]
  - LOSS OF CONSCIOUSNESS [None]
  - PRURITUS [None]
  - SHOCK [None]
  - URTICARIA [None]
